FAERS Safety Report 23272290 (Version 2)
Quarter: 2023Q4

REPORT INFORMATION
  Report Type: Spontaneous
  Country: ES (occurrence: ES)
  Receive Date: 20231207
  Receipt Date: 20231212
  Transmission Date: 20240110
  Serious: Yes (Hospitalization, Other)
  Sender: FDA-Public Use
  Company Number: ES-PFIZER INC-202300409672

PATIENT
  Age: 66 Year

DRUGS (4)
  1. VINCRISTINE SULFATE [Suspect]
     Active Substance: VINCRISTINE SULFATE
     Indication: Thymoma
     Dosage: 250 UG, WEEKLY
     Route: 042
     Dates: start: 202202
  2. DOXORUBICIN [Suspect]
     Active Substance: DOXORUBICIN
     Indication: Thymoma
     Dosage: 30 MG, WEEKLY
     Route: 042
     Dates: start: 202202, end: 202301
  3. CYCLOPHOSPHAMIDE [Suspect]
     Active Substance: CYCLOPHOSPHAMIDE
     Indication: Thymoma
     Dosage: 50 MG, DAILY
     Route: 048
     Dates: start: 202202
  4. FLUOROURACIL SODIUM [Suspect]
     Active Substance: FLUOROURACIL SODIUM
     Indication: Thymoma
     Dosage: 500 MG, WEEKLY
     Route: 042
     Dates: start: 202202

REACTIONS (2)
  - Mucosal inflammation [Unknown]
  - Off label use [Unknown]

NARRATIVE: CASE EVENT DATE: 20220101
